FAERS Safety Report 10451448 (Version 1)
Quarter: 2014Q3

REPORT INFORMATION
  Report Type: Spontaneous
  Country: FR (occurrence: FR)
  Receive Date: 20140912
  Receipt Date: 20140912
  Transmission Date: 20150326
  Serious: Yes (Hospitalization, Other)
  Sender: FDA-Public Use
  Company Number: FR-MERCK-1409FRA006062

PATIENT
  Age: 62 Year
  Sex: Female

DRUGS (19)
  1. BACTRIM [Suspect]
     Active Substance: SULFAMETHOXAZOLE\TRIMETHOPRIM
     Indication: OPPORTUNISTIC INFECTION PROPHYLAXIS
     Dosage: 1 DF, ONCE EVERY 2 DAYS
     Route: 048
     Dates: start: 20140424, end: 20140517
  2. LASILIX [Suspect]
     Active Substance: FUROSEMIDE
     Indication: OEDEMA PERIPHERAL
     Dosage: 125 MG, QD
     Route: 042
     Dates: start: 20140410, end: 20140411
  3. LASILIX [Suspect]
     Active Substance: FUROSEMIDE
     Dosage: 500MG, 0.5 TABLETS , QD
     Route: 048
     Dates: start: 20140412, end: 20140414
  4. MODAMIDE [Suspect]
     Active Substance: AMILORIDE HYDROCHLORIDE
     Indication: OEDEMA PERIPHERAL
     Dosage: 1 TABLET, QD
     Route: 048
     Dates: start: 20140412, end: 20140418
  5. FEMARA [Concomitant]
     Active Substance: LETROZOLE
  6. DEXAMETHASONE. [Suspect]
     Active Substance: DEXAMETHASONE
     Indication: RENAL AMYLOIDOSIS
     Dosage: 20MG/5ML, 40 MG, QD, 4 DAYS BY 28 DAYS CYCLE
     Route: 048
     Dates: start: 20140417, end: 20140420
  7. ALKERAN [Suspect]
     Active Substance: MELPHALAN
     Dosage: 18 MG, QD
     Route: 042
  8. ZELITREX [Suspect]
     Active Substance: VALACYCLOVIR HYDROCHLORIDE
     Indication: ANTIVIRAL PROPHYLAXIS
     Dosage: 500 MG, BID
     Route: 048
     Dates: start: 20140417, end: 20140517
  9. COUMADIN [Suspect]
     Active Substance: WARFARIN SODIUM
     Indication: THROMBOSIS PROPHYLAXIS
     Dosage: UNK
     Route: 048
     Dates: start: 20140416
  10. BENZATHINE PHENOXYMETHYL PENICILLIN [Suspect]
     Active Substance: PENICILLIN V BENZATHINE
     Indication: PROPHYLAXIS
     Dosage: 1 DF, BID
     Route: 048
     Dates: start: 20140416, end: 20140517
  11. LASILIX [Suspect]
     Active Substance: FUROSEMIDE
     Dosage: 1 TABLET, QD
     Route: 048
     Dates: start: 20140423
  12. FUROSEMIDE. [Suspect]
     Active Substance: FUROSEMIDE
     Indication: OEDEMA PERIPHERAL
     Route: 048
  13. EZETROL [Concomitant]
     Active Substance: EZETIMIBE
     Route: 048
  14. ZELITREX [Suspect]
     Active Substance: VALACYCLOVIR HYDROCHLORIDE
     Dosage: UNK
     Dates: start: 2014
  15. LASILIX [Suspect]
     Active Substance: FUROSEMIDE
     Dosage: 40MG, 2 TABLETS BY DAY
     Route: 048
     Dates: start: 20140411, end: 20140412
  16. LASILIX [Suspect]
     Active Substance: FUROSEMIDE
     Dosage: 40MG 2 TABLETS, QD
     Dates: start: 20140417, end: 20140418
  17. MODAMIDE [Suspect]
     Active Substance: AMILORIDE HYDROCHLORIDE
     Dosage: 1 TABLET, QD
     Dates: start: 20130425
  18. LASILIX [Suspect]
     Active Substance: FUROSEMIDE
     Dosage: 500MG, 0.25 TABLETS BY DAY
     Route: 048
     Dates: start: 20140415, end: 20140417
  19. LEVOTHYROXINE SODIUM. [Concomitant]
     Active Substance: LEVOTHYROXINE SODIUM
     Route: 048

REACTIONS (1)
  - Renal failure acute [Not Recovered/Not Resolved]

NARRATIVE: CASE EVENT DATE: 201404
